FAERS Safety Report 5228803-4 (Version None)
Quarter: 2007Q1

REPORT INFORMATION
  Report Type: 
  Country: None (occurrence: None)
  Receive Date: 20070131
  Receipt Date: 20070119
  Transmission Date: 20070707
  Serious: Yes (Hospitalization)
  Sender: FDA-Public Use
  Company Number: S07-UKI-00418-01

PATIENT
  Age: 81 Year
  Sex: Female

DRUGS (5)
  1. CITALOPRAM HYDROBROMIDE [Suspect]
     Indication: DEPRESSION
     Dosage: 10 MG QD PO
     Route: 048
     Dates: start: 20061227, end: 20070109
  2. FYBOGEL(ISPAGHULA) [Concomitant]
  3. OMEPRAZOLE [Concomitant]
  4. OXYTETRACYCLINE [Concomitant]
  5. RENNIE (CALCIUM CARBONATE) [Concomitant]

REACTIONS (1)
  - BLOOD SODIUM DECREASED [None]
